FAERS Safety Report 8171034-9 (Version None)
Quarter: 2012Q1

REPORT INFORMATION
  Report Type: 
  Country: None (occurrence: None)
  Receive Date: 20120228
  Receipt Date: 20120214
  Transmission Date: 20120608
  Serious: Yes (Other)
  Sender: FDA-Public Use
  Company Number: PHHY2012DE016348

PATIENT

DRUGS (9)
  1. CYCLOSPORINE [Suspect]
  2. ITRACONAZOLE [Concomitant]
     Indication: PROPHYLAXIS
  3. PLASMA [Concomitant]
  4. COTRIM [Concomitant]
     Indication: PROPHYLAXIS
  5. MYCOPHENOLATE MOFETIL [Concomitant]
  6. METHYLPREDNISOLONE [Concomitant]
  7. PREDNISOLONE [Concomitant]
     Dosage: 0.1 MG/KG
  8. EVEROLIMUS [Suspect]
  9. ACYCLOVIR [Concomitant]
     Indication: PROPHYLAXIS

REACTIONS (3)
  - HAEMOLYTIC ANAEMIA [None]
  - HAEMOLYTIC URAEMIC SYNDROME [None]
  - RENAL FAILURE ACUTE [None]
